FAERS Safety Report 5594689-1 (Version None)
Quarter: 2007Q4

REPORT INFORMATION
  Report Type: 
  Country: None (occurrence: None)
  Receive Date: 20071218
  Receipt Date: 20071015
  Transmission Date: 20080405
  Serious: Yes (Other)
  Sender: FDA-Public Use
  Company Number: 07-002036

PATIENT
  Age: 16 Year
  Sex: Female
  Weight: 72.6 kg

DRUGS (1)
  1. LOESTRIN 24 FE [Suspect]
     Indication: OVARIAN CYST
     Dosage: 20/1000UG, QD, ORAL
     Route: 048
     Dates: start: 20070826, end: 20071003

REACTIONS (5)
  - ALOPECIA [None]
  - MENORRHAGIA [None]
  - METRORRHAGIA [None]
  - VISION BLURRED [None]
  - VISUAL ACUITY REDUCED [None]
